FAERS Safety Report 9007334 (Version 1)
Quarter: 2013Q1

REPORT INFORMATION
  Report Type: Spontaneous
  Country: US (occurrence: US)
  Receive Date: 20130110
  Receipt Date: 20130110
  Transmission Date: 20140127
  Serious: Yes (Disabling)
  Sender: FDA-Public Use
  Company Number: US-PFIZER INC-2013011716

PATIENT
  Sex: Female
  Weight: 63.49 kg

DRUGS (5)
  1. LIPITOR [Suspect]
     Indication: BLOOD CHOLESTEROL ABNORMAL
     Dosage: 80 MG, DAILY
  2. LIPITOR [Suspect]
     Dosage: 40 MG, DAILY
  3. LIPITOR [Suspect]
     Dosage: UNK, DAILY
  4. LYRICA [Suspect]
     Indication: SCIATICA
     Dosage: 50 MG, 2X/DAY
     Dates: start: 2010
  5. NEXIUM [Concomitant]
     Indication: ULCER
     Dosage: 40 MG, 2X/DAY

REACTIONS (2)
  - Dysstasia [Unknown]
  - Gait disturbance [Unknown]
